FAERS Safety Report 7023233-7 (Version None)
Quarter: 2010Q3

REPORT INFORMATION
  Report Type: 
  Country: None (occurrence: None)
  Receive Date: 20100930
  Receipt Date: 20100924
  Transmission Date: 20110219
  Serious: Yes (Life-Threatening, Hospitalization)
  Sender: FDA-Public Use
  Company Number: US-AMGEN-KDC440903

PATIENT
  Age: 68 Year
  Sex: Male
  Weight: 77.2 kg

DRUGS (6)
  1. PANITUMUMAB [Suspect]
     Indication: OESOPHAGEAL CARCINOMA
     Dates: start: 20100802
  2. CISPLATIN [Suspect]
     Route: 042
     Dates: start: 20100802
  3. FLUOROURACIL [Suspect]
     Route: 042
     Dates: start: 20100802
  4. RADIATION THERAPY [Suspect]
  5. UNSPECIFIED INTRAVENOUS FLUIDS [Concomitant]
  6. MAGNESIUM [Concomitant]

REACTIONS (7)
  - COLITIS [None]
  - DIARRHOEA [None]
  - HYPERGLYCAEMIA [None]
  - LEUKOPENIA [None]
  - PLATELET COUNT DECREASED [None]
  - RENAL FAILURE [None]
  - SEPSIS [None]
